FAERS Safety Report 5908078-0 (Version None)
Quarter: 2008Q4

REPORT INFORMATION
  Report Type: 
  Country: None (occurrence: None)
  Receive Date: 20081003
  Receipt Date: 20080924
  Transmission Date: 20090506
  Serious: Yes (Other)
  Sender: FDA-Public Use
  Company Number: BR-PFIZER INC-2008080076

PATIENT
  Sex: Female
  Weight: 82 kg

DRUGS (5)
  1. ZOLOFT [Suspect]
     Indication: PANIC REACTION
     Route: 048
     Dates: start: 20080912
  2. PONSTAN [Concomitant]
  3. ACETAMINOPHEN [Concomitant]
  4. ADVIL [Concomitant]
  5. RIVOTRIL [Concomitant]
     Indication: INSOMNIA

REACTIONS (5)
  - BLOOD PRESSURE INCREASED [None]
  - FALL [None]
  - HEAD INJURY [None]
  - HEADACHE [None]
  - NECK PAIN [None]
